FAERS Safety Report 6608316-5 (Version None)
Quarter: 2010Q1

REPORT INFORMATION
  Report Type: 
  Country: None (occurrence: None)
  Receive Date: 20100301
  Receipt Date: 20100218
  Transmission Date: 20100710
  Serious: Yes (Other)
  Sender: FDA-Public Use
  Company Number: DE-SANOFI-AVENTIS-2010SA009616

PATIENT

DRUGS (1)
  1. MULTAQ [Suspect]
     Indication: ATRIAL FIBRILLATION
     Route: 048

REACTIONS (2)
  - BLOOD CREATININE INCREASED [None]
  - RENAL FAILURE ACUTE [None]
